FAERS Safety Report 13319375 (Version 1)
Quarter: 2017Q1

REPORT INFORMATION
  Report Type: Spontaneous
  Country: FR (occurrence: FR)
  Receive Date: 20170309
  Receipt Date: 20170309
  Transmission Date: 20170428
  Serious: Yes (Hospitalization)
  Sender: FDA-Public Use
  Company Number: FR-ROCHE-1902388

PATIENT
  Age: 88 Year
  Sex: Female

DRUGS (11)
  1. PRAVASTATIN. [Concomitant]
     Active Substance: PRAVASTATIN
     Dosage: IN THE EVENING
     Route: 065
     Dates: start: 20170206
  2. AUGMENTIN [Concomitant]
     Active Substance: AMOXICILLIN\CLAVULANATE POTASSIUM
  3. UMULINE RAPIDE [Concomitant]
     Active Substance: INSULIN ASPART
     Dosage: STRENGTH: 100 IU/1ML (0.5 ML)
     Route: 058
     Dates: start: 20170206
  4. APROVEL [Concomitant]
     Active Substance: IRBESARTAN
     Dosage: IN MORNING
     Route: 065
     Dates: start: 20170206
  5. LOVENOX [Concomitant]
     Active Substance: ENOXAPARIN SODIUM
     Dosage: CONTINUED AT IDENTICAL DOSES LATER
     Route: 058
     Dates: start: 20170207
  6. KARDEGIC [Suspect]
     Active Substance: ASPIRIN LYSINE
     Indication: TRANSIENT ISCHAEMIC ATTACK
     Route: 048
     Dates: end: 20170206
  7. ACTILYSE [Suspect]
     Active Substance: ALTEPLASE
     Indication: PRODUCT USED FOR UNKNOWN INDICATION
     Dosage: FOR ONE DAY
     Route: 042
     Dates: start: 20170206, end: 20170206
  8. PARACETAMOL [Concomitant]
     Active Substance: ACETAMINOPHEN
     Route: 042
     Dates: start: 20170207, end: 20170207
  9. LOXEN (FRANCE) [Concomitant]
     Active Substance: NICARDIPINE HYDROCHLORIDE
     Route: 042
     Dates: start: 20170206, end: 20170208
  10. HYPERIUM [Concomitant]
     Active Substance: RILMENIDINE PHOSPHATE
     Dosage: IN THE MORNING
     Route: 065
     Dates: start: 20170206
  11. BISOPROLOL [Concomitant]
     Active Substance: BISOPROLOL
     Dosage: IN THE MORNING
     Route: 065
     Dates: start: 20170206

REACTIONS (1)
  - Haemorrhagic transformation stroke [Not Recovered/Not Resolved]

NARRATIVE: CASE EVENT DATE: 20170207
